FAERS Safety Report 9996921 (Version 2)
Quarter: 2014Q2

REPORT INFORMATION
  Report Type: Spontaneous
  Country: US (occurrence: US)
  Receive Date: 20140311
  Receipt Date: 20140502
  Transmission Date: 20141212
  Serious: No
  Sender: FDA-Public Use
  Company Number: US-TEVA-467809USA

PATIENT
  Sex: Male
  Weight: 67.65 kg

DRUGS (7)
  1. QVAR [Suspect]
     Indication: ASTHMA
     Dosage: 160 MICROGRAM DAILY; TOTAL DAILY DOSE: 2 INHALATIONS
     Dates: start: 2003
  2. MAXAIR INHALER [Concomitant]
     Indication: ASTHMA
  3. XOPENEX [Concomitant]
     Indication: ASTHMA
  4. T3 [Concomitant]
     Indication: THYROIDITIS
  5. T4 [Concomitant]
     Indication: THYROIDITIS
  6. CIMETIDINE COMPOUNDED [Concomitant]
     Indication: DYSPEPSIA
  7. ALOMIDE [Concomitant]

REACTIONS (7)
  - Urethritis noninfective [Not Recovered/Not Resolved]
  - Urethral spasm [Not Recovered/Not Resolved]
  - Urethral pain [Not Recovered/Not Resolved]
  - Burning sensation [Not Recovered/Not Resolved]
  - H1N1 influenza [Recovered/Resolved]
  - Malaise [Unknown]
  - Intentional product misuse [Unknown]
